FAERS Safety Report 13728114 (Version 2)
Quarter: 2017Q3

REPORT INFORMATION
  Report Type: Report from Study
  Country: IL (occurrence: IL)
  Receive Date: 20170707
  Receipt Date: 20170726
  Transmission Date: 20171127
  Serious: Yes (Other)
  Sender: FDA-Public Use
  Company Number: IL-TAKEDA-2017TUS014338

PATIENT
  Age: 53 Year
  Sex: Female
  Weight: 50 kg

DRUGS (6)
  1. MLN0002 [Suspect]
     Active Substance: VEDOLIZUMAB
     Indication: COLITIS ULCERATIVE
     Dosage: 300 MG, UNK
     Route: 042
     Dates: start: 20170402, end: 20170516
  2. BLINDED PLACEBO [Suspect]
     Active Substance: INVESTIGATIONAL PRODUCT
     Indication: COLITIS ULCERATIVE
     Dosage: UNK
     Route: 058
  3. BLINDED VEDOLIZUMAB [Suspect]
     Active Substance: VEDOLIZUMAB
     Indication: COLITIS ULCERATIVE
     Dosage: UNK
     Route: 058
  4. BLINDED VEDOLIZUMAB [Suspect]
     Active Substance: VEDOLIZUMAB
     Indication: COLITIS ULCERATIVE
     Dosage: UNK
     Route: 058
  5. RAFASSAL                           /00000301/ [Concomitant]
     Dosage: 4 G, QD
     Route: 048
  6. RAFASSAL                           /00000301/ [Concomitant]
     Indication: COLITIS ULCERATIVE
     Dosage: 1 G, QD
     Dates: end: 20170318

REACTIONS (1)
  - Rectal adenocarcinoma [Not Recovered/Not Resolved]

NARRATIVE: CASE EVENT DATE: 20170621
